FAERS Safety Report 22516868 (Version 1)
Quarter: 2023Q2

REPORT INFORMATION
  Report Type: Spontaneous
  Country: IN (occurrence: IN)
  Receive Date: 20230603
  Receipt Date: 20230603
  Transmission Date: 20230721
  Serious: Yes (Other)
  Sender: FDA-Public Use
  Company Number: IN-STRIDES ARCOLAB LIMITED-2023SP008790

PATIENT
  Age: 76 Year
  Sex: Female

DRUGS (2)
  1. TORSEMIDE [Suspect]
     Active Substance: TORSEMIDE
     Indication: Hypertension
     Dosage: 10 MILLIGRAM PER DAY
     Route: 065
  2. AMIKACIN [Suspect]
     Active Substance: AMIKACIN
     Indication: Urinary tract infection
     Dosage: 500 MILLIGRAM, BID (INJECTION )
     Route: 042

REACTIONS (7)
  - Vesicoureteric reflux [Unknown]
  - Gait disturbance [Unknown]
  - Condition aggravated [Unknown]
  - Chronic kidney disease [Unknown]
  - Deafness bilateral [Unknown]
  - Ageusia [Unknown]
  - Anosmia [Unknown]
